FAERS Safety Report 5069307-1 (Version None)
Quarter: 2006Q3

REPORT INFORMATION
  Report Type: 
  Country: None (occurrence: None)
  Receive Date: 20060803
  Receipt Date: 20060615
  Transmission Date: 20061208
  Serious: Yes (Other)
  Sender: FDA-Public Use
  Company Number: PHEH2006US07885

PATIENT
  Age: 19 Year
  Sex: Male
  Weight: 65.759 kg

DRUGS (7)
  1. CLOZARIL [Suspect]
     Indication: SCHIZOAFFECTIVE DISORDER
     Dosage: 125 MG, QD
     Route: 048
     Dates: start: 20051101
  2. CLOZARIL [Suspect]
     Dosage: 100 MG, QD
     Route: 048
  3. COGENTIN [Concomitant]
     Indication: EXTRAPYRAMIDAL DISORDER
     Dosage: 2 MG, QD
     Route: 048
     Dates: start: 20051114
  4. NEURONTIN [Concomitant]
     Indication: AFFECTIVE DISORDER
     Dosage: 300 MG, TID
     Route: 048
     Dates: start: 20051109
  5. ATARAX [Concomitant]
     Indication: AGITATION
     Dosage: 50 MG, TID
     Route: 048
     Dates: start: 20051110
  6. DEPAKOTE [Concomitant]
     Indication: AFFECTIVE DISORDER
     Dosage: 1 G, QHS
     Route: 048
     Dates: start: 20060310, end: 20060603
  7. CLONAZEPAM [Concomitant]
     Indication: AGGRESSION
     Dosage: 1 MG, UNK
     Route: 048
     Dates: start: 20060109, end: 20060208

REACTIONS (3)
  - BLOOD AMYLASE INCREASED [None]
  - BLOOD TRIGLYCERIDES INCREASED [None]
  - WEIGHT INCREASED [None]
